FAERS Safety Report 16238330 (Version 1)
Quarter: 2019Q2

REPORT INFORMATION
  Report Type: Spontaneous
  Country: PT (occurrence: PT)
  Receive Date: 20190425
  Receipt Date: 20190425
  Transmission Date: 20190711
  Serious: Yes (Hospitalization, Other)
  Sender: FDA-Public Use
  Company Number: PHHY2019PT091645

PATIENT
  Age: 40 Year
  Sex: Male

DRUGS (3)
  1. VALPROIC ACID. [Concomitant]
     Active Substance: VALPROIC ACID
     Indication: AFFECTIVE DISORDER
     Dosage: 500 MG, QD
     Route: 065
  2. BUPROPION. [Suspect]
     Active Substance: BUPROPION
     Indication: DRUG DEPENDENCE
     Dosage: 300 MG, QD (6 TABLETS INGESTED)
     Route: 048
  3. METHYLENE BLUE. [Suspect]
     Active Substance: METHYLENE BLUE
     Indication: METHAEMOGLOBINAEMIA
     Dosage: 1 MG/KG, UNK
     Route: 042

REACTIONS (10)
  - Generalised tonic-clonic seizure [Recovered/Resolved]
  - Confusional state [Unknown]
  - Fatigue [Unknown]
  - Methaemoglobinaemia [Recovered/Resolved]
  - Disorientation [Unknown]
  - Extra dose administered [Unknown]
  - Cyanosis central [Unknown]
  - Dyspnoea [Unknown]
  - Toxicity to various agents [Unknown]
  - Oxygen saturation abnormal [Unknown]
